FAERS Safety Report 5460743-8 (Version None)
Quarter: 2007Q3

REPORT INFORMATION
  Report Type: 
  Country: None (occurrence: None)
  Receive Date: 20070919
  Receipt Date: 20070907
  Transmission Date: 20080115
  Serious: Yes (Other)
  Sender: FDA-Public Use
  Company Number: JP-MERCK-0709USA01449

PATIENT
  Age: 70 Year
  Sex: Female

DRUGS (3)
  1. INDOCIN [Suspect]
     Route: 054
     Dates: start: 19960501
  2. [THERAPY UNSPECIFIED] [Suspect]
     Route: 065
  3. [THERAPY UNSPECIFIED] [Suspect]
     Route: 065

REACTIONS (1)
  - OCULOMUCOCUTANEOUS SYNDROME [None]
